FAERS Safety Report 5884755-5 (Version None)
Quarter: 2008Q3

REPORT INFORMATION
  Report Type: 
  Country: None (occurrence: None)
  Receive Date: 20080915
  Receipt Date: 20080915
  Transmission Date: 20090109
  Serious: Yes (Other)
  Sender: FDA-Public Use
  Company Number: None

PATIENT
  Age: 50 Day
  Sex: Female
  Weight: 96.1626 kg

DRUGS (3)
  1. NORTRIPTYLINE HCL [Suspect]
     Indication: FIBROMYALGIA
     Dosage: .50 NIGHTLY PO
     Route: 048
     Dates: start: 20080820, end: 20080912
  2. NORTRIPTYLINE HCL [Suspect]
     Indication: INSOMNIA
     Dosage: .50 NIGHTLY PO
     Route: 048
     Dates: start: 20080820, end: 20080912
  3. NORTRIPTYLINE HCL [Suspect]
     Indication: MYALGIA
     Dosage: .50 NIGHTLY PO
     Route: 048
     Dates: start: 20080820, end: 20080912

REACTIONS (8)
  - BLOOD PRESSURE INCREASED [None]
  - BURNING SENSATION [None]
  - CONFUSIONAL STATE [None]
  - DIZZINESS [None]
  - HYPOAESTHESIA [None]
  - PAIN IN EXTREMITY [None]
  - PARAESTHESIA [None]
  - POLLAKIURIA [None]
